FAERS Safety Report 6529354-7 (Version None)
Quarter: 2010Q1

REPORT INFORMATION
  Report Type: 
  Country: None (occurrence: None)
  Receive Date: 20100104
  Receipt Date: 20091224
  Transmission Date: 20100710
  Serious: Yes (Other)
  Sender: FDA-Public Use
  Company Number: AE-2009-336

PATIENT
  Age: 58 Year
  Sex: Female
  Weight: 62 kg

DRUGS (7)
  1. METOCLOPRAMIDE [Suspect]
     Dosage: 10MG I.V.
     Route: 042
  2. MEPERIDINE HCL [Suspect]
     Indication: ANAESTHESIA
     Dosage: 60MG
  3. THIOPENTAL SODIUM [Suspect]
     Indication: ANAESTHESIA
     Dosage: 300MG, IV
     Route: 042
  4. VECURONIUM BROMIDE [Suspect]
     Indication: HYPOTONIA
     Dosage: 3 MG, IV
     Route: 042
  5. BUPIVACAINE HCL [Suspect]
     Indication: ANAESTHESIA
     Dosage: 3ML
  6. SUCCINYLCHOLINE [Suspect]
     Indication: ENDOTRACHEAL INTUBATION
     Dosage: 100MG, IV
     Route: 042
  7. HALOTHANE [Suspect]
     Indication: ANAESTHESIA
     Dosage: 0.5-1.5%

REACTIONS (3)
  - BRADYCARDIA [None]
  - CARDIAC ARREST [None]
  - PNEUMOPERITONEUM [None]
